FAERS Safety Report 14160755 (Version 1)
Quarter: 2017Q4

REPORT INFORMATION
  Report Type: Spontaneous
  Country: US (occurrence: US)
  Receive Date: 20171103
  Receipt Date: 20171103
  Transmission Date: 20180321
  Serious: Yes (Other)
  Sender: FDA-Public Use
  Company Number: None

PATIENT
  Age: 25 Year
  Sex: Female
  Weight: 67.5 kg

DRUGS (5)
  1. CLONAZEPAM(CLONOPIN) [Concomitant]
  2. ADULT MULTI VITAMINS (GUMMY, NOT CAPSULE OR PILL) [Concomitant]
  3. PROZAC [Concomitant]
     Active Substance: FLUOXETINE HYDROCHLORIDE
  4. VIIBRYD [Suspect]
     Active Substance: VILAZODONE HYDROCHLORIDE
     Indication: DEPRESSION
     Dosage: ?          QUANTITY:1 TABLET(S);?
     Route: 048
  5. FAMCICLOVER [Concomitant]

REACTIONS (3)
  - Depression [None]
  - Mood swings [None]
  - Anger [None]
